FAERS Safety Report 4699940-8 (Version None)
Quarter: 2005Q2

REPORT INFORMATION
  Report Type: 
  Country: None (occurrence: None)
  Receive Date: 20050627
  Receipt Date: 20050615
  Transmission Date: 20051028
  Serious: Yes (Death, Hospitalization, Other)
  Sender: FDA-Public Use
  Company Number: GB-JNJFOC-20050602142

PATIENT
  Sex: Male
  Weight: 57 kg

DRUGS (16)
  1. REOPRO [Suspect]
     Route: 042
  2. REOPRO [Suspect]
     Indication: CORONARY ARTERY SURGERY
     Route: 042
  3. CLOPIDOGREL BISULFATE [Concomitant]
     Indication: ACUTE MYOCARDIAL INFARCTION
  4. CLOPIDOGREL BISULFATE [Concomitant]
     Indication: CORONARY ARTERY SURGERY
  5. ASPIRIN [Concomitant]
     Indication: ACUTE MYOCARDIAL INFARCTION
  6. ASPIRIN [Concomitant]
     Indication: CORONARY ARTERY SURGERY
  7. HEPARIN [Concomitant]
     Route: 042
  8. HEPARIN [Concomitant]
     Indication: CORONARY ARTERY SURGERY
     Route: 042
  9. ATORVASTATIN CALCIUM [Concomitant]
     Route: 049
  10. CIPRALEX [Concomitant]
     Dosage: START DATE-PRE ADMISSION
     Route: 049
  11. METOPROLOL [Concomitant]
     Route: 049
  12. BISOPROLOL [Concomitant]
     Route: 049
  13. RAMIPRIL [Concomitant]
     Route: 049
  14. NICORETTE [Concomitant]
     Route: 062
  15. ENOXAPARIN SODIUM [Concomitant]
  16. ENOXAPARIN SODIUM [Concomitant]

REACTIONS (2)
  - CEREBRAL HAEMORRHAGE [None]
  - THROMBOCYTOPENIA [None]
